FAERS Safety Report 4993756-0 (Version None)
Quarter: 2006Q2

REPORT INFORMATION
  Report Type: 
  Country: None (occurrence: None)
  Receive Date: 20060505
  Receipt Date: 20050414
  Transmission Date: 20061013
  Serious: Yes (Other)
  Sender: FDA-Public Use
  Company Number: US-MERCK-0504USA02545

PATIENT
  Age: 46 Year
  Sex: Female
  Weight: 84 kg

DRUGS (12)
  1. VIOXX [Suspect]
     Indication: ARTHRITIS
     Route: 048
     Dates: start: 20000101, end: 20020101
  2. VIOXX [Suspect]
     Indication: FIBROMYALGIA
     Route: 048
     Dates: start: 20000101, end: 20020101
  3. GLUCOPHAGE [Concomitant]
     Route: 065
  4. SINGULAIR [Concomitant]
     Route: 065
  5. GLYBURIDE [Concomitant]
     Route: 065
  6. [THERAPY UNSPECIFIED] [Concomitant]
     Route: 065
  7. ACCUPRIL [Concomitant]
     Route: 065
  8. ACTOS [Concomitant]
     Route: 065
  9. CIPROFLOXACIN HCL [Concomitant]
     Route: 065
  10. ZESTRIL [Concomitant]
     Route: 065
  11. VIOXX [Suspect]
     Route: 048
     Dates: start: 20000101, end: 20020101
  12. VIOXX [Suspect]
     Route: 048
     Dates: start: 20000101, end: 20020101

REACTIONS (14)
  - ARRHYTHMIA [None]
  - ARTHRALGIA [None]
  - BLOOD PRESSURE INCREASED [None]
  - CARDIAC DISORDER [None]
  - CHEST PAIN [None]
  - CONDITION AGGRAVATED [None]
  - DIABETES MELLITUS [None]
  - GASTRIC PERFORATION [None]
  - GASTROOESOPHAGEAL REFLUX DISEASE [None]
  - HEART RATE IRREGULAR [None]
  - INJURY [None]
  - MYOCARDIAL INFARCTION [None]
  - PALPITATIONS [None]
  - SWELLING [None]
